FAERS Safety Report 21675709 (Version 1)
Quarter: 2022Q4

REPORT INFORMATION
  Report Type: Report from Study
  Country: US (occurrence: None)
  Receive Date: 20221202
  Receipt Date: 20221202
  Transmission Date: 20230113
  Serious: Yes (Life-Threatening, Hospitalization)
  Sender: FDA-Public Use
  Company Number: US-Merck Healthcare KGaA-9369704

PATIENT
  Age: 81 Year
  Sex: Male

DRUGS (1)
  1. TEPMETKO [Suspect]
     Active Substance: TEPOTINIB HYDROCHLORIDE
     Indication: Product used for unknown indication
     Dosage: PATIENT TOOK TEPMETKO 225 MG 2 TABLETS ONCE DAILY
     Route: 048
     Dates: start: 20221109

REACTIONS (3)
  - Hallucination [Unknown]
  - Asthenia [Unknown]
  - Hospitalisation [Unknown]
